FAERS Safety Report 8016235-5 (Version None)
Quarter: 2011Q4

REPORT INFORMATION
  Report Type: 
  Country: None (occurrence: None)
  Receive Date: 20111230
  Receipt Date: 20111227
  Transmission Date: 20120403
  Serious: Yes (Hospitalization, Disabling)
  Sender: FDA-Public Use
  Company Number: US-MERCK-1108USA03400

PATIENT
  Age: 60 Year
  Sex: Female

DRUGS (10)
  1. VITAMINS (UNSPECIFIED) [Concomitant]
     Route: 065
     Dates: start: 19900101
  2. ASCORBIC ACID [Concomitant]
     Route: 065
     Dates: start: 19900101
  3. OSTEO-BI-FLEX [Concomitant]
     Route: 065
     Dates: start: 19900101
  4. FOSAMAX [Suspect]
     Indication: OSTEOPOROSIS
     Route: 048
     Dates: start: 19980101, end: 20010101
  5. PROCARDIA [Concomitant]
     Indication: CARDIAC DISORDER
     Route: 065
     Dates: start: 19700101
  6. VITAMIN E [Concomitant]
     Route: 065
     Dates: start: 19900101
  7. BONIVA [Suspect]
     Indication: OSTEOPOROSIS
     Route: 065
     Dates: start: 20060926, end: 20100101
  8. ALBUTEROL [Concomitant]
     Indication: ASTHMA
     Route: 065
     Dates: start: 19970101
  9. FOSAMAX [Suspect]
     Route: 048
     Dates: start: 20010101, end: 20060926
  10. ADVAIR DISKUS 100/50 [Concomitant]
     Indication: ASTHMA
     Route: 065
     Dates: start: 20010101

REACTIONS (9)
  - ADVERSE EVENT [None]
  - BLOOD CHOLESTEROL INCREASED [None]
  - ARTHROPATHY [None]
  - DRUG ADMINISTRATION ERROR [None]
  - OSTEOPOROSIS [None]
  - FEMUR FRACTURE [None]
  - STRESS FRACTURE [None]
  - PAIN IN EXTREMITY [None]
  - LOW TURNOVER OSTEOPATHY [None]
